FAERS Safety Report 13385243 (Version 2)
Quarter: 2017Q2

REPORT INFORMATION
  Report Type: Report from Study
  Country: US (occurrence: US)
  Receive Date: 20170329
  Receipt Date: 20170427
  Transmission Date: 20170830
  Serious: No
  Sender: FDA-Public Use
  Company Number: PHEH2017US008889

PATIENT
  Age: 64 Year
  Sex: Female

DRUGS (1)
  1. COSENTYX [Suspect]
     Active Substance: SECUKINUMAB
     Indication: PSORIATIC ARTHROPATHY
     Dosage: 300 MG, QMO
     Route: 030

REACTIONS (3)
  - Incorrect dose administered by device [Unknown]
  - Incorrect route of drug administration [Unknown]
  - Device issue [Unknown]

NARRATIVE: CASE EVENT DATE: 20170323
